FAERS Safety Report 5399118-9 (Version None)
Quarter: 2007Q3

REPORT INFORMATION
  Report Type: 
  Country: None (occurrence: None)
  Receive Date: 20070727
  Receipt Date: 20070122
  Transmission Date: 20080115
  Serious: No
  Sender: FDA-Public Use
  Company Number: A0636293A

PATIENT
  Age: 80 Year
  Sex: Female

DRUGS (2)
  1. TAGAMET HB 200 [Suspect]
     Dates: start: 20070109, end: 20070111
  2. DILANTIN KAPSEAL [Concomitant]

REACTIONS (6)
  - BALANCE DISORDER [None]
  - FEELING ABNORMAL [None]
  - MALAISE [None]
  - PRURITUS [None]
  - TINNITUS [None]
  - VERTIGO [None]
